FAERS Safety Report 5292193-1 (Version None)
Quarter: 2007Q2

REPORT INFORMATION
  Report Type: 
  Country: None (occurrence: None)
  Receive Date: 20070410
  Receipt Date: 20070406
  Transmission Date: 20071010
  Serious: Yes (Death, Other)
  Sender: FDA-Public Use
  Company Number: PL-BRISTOL-MYERS SQUIBB COMPANY-13532882

PATIENT

DRUGS (3)
  1. ETOPOSIDE [Suspect]
     Indication: SMALL CELL LUNG CANCER STAGE UNSPECIFIED
     Dosage: GIVEN ON 1ST, 3RD, AND 5TH DAY OF EACH COURSE (MAXIMUM 5 COURSES)
     Route: 042
  2. CISPLATIN [Suspect]
     Indication: SMALL CELL LUNG CANCER STAGE UNSPECIFIED
     Dosage: GIVEN ON 1ST, 2ND, AND 3RD DAY OF EACH COURSE (MAXIMUM 5 COURSES)
     Route: 042
  3. RADIOTHERAPY [Suspect]
     Indication: SMALL CELL LUNG CANCER STAGE UNSPECIFIED
     Dosage: CHEST IRRADIATION 54 GRAY (TOTAL), DIVIDED IN 30 FRACTIONS (1/DAY, 5/WEEK).

REACTIONS (13)
  - ANAEMIA [None]
  - ARRHYTHMIA [None]
  - CARDIAC FAILURE [None]
  - DEATH [None]
  - DYSPHAGIA [None]
  - LEUKOPENIA [None]
  - MALIGNANT NEOPLASM PROGRESSION [None]
  - NAUSEA [None]
  - PULMONARY HAEMORRHAGE [None]
  - RADIATION SKIN INJURY [None]
  - RENAL IMPAIRMENT [None]
  - THROMBOCYTOPENIA [None]
  - VOMITING [None]
